FAERS Safety Report 10088098 (Version 2)
Quarter: 2014Q2

REPORT INFORMATION
  Report Type: Spontaneous
  Country: US (occurrence: US)
  Receive Date: 20140421
  Receipt Date: 20140421
  Transmission Date: 20141212
  Serious: No
  Sender: FDA-Public Use
  Company Number: US-009507513-1201USA02810

PATIENT
  Sex: Female

DRUGS (3)
  1. SINGULAIR [Suspect]
     Indication: ASTHMA
     Dosage: 10 MG, UNK
     Route: 048
     Dates: start: 2008
  2. BUPROPION HYDROCHLORIDE [Concomitant]
  3. PREVACID [Concomitant]

REACTIONS (2)
  - Exposure during pregnancy [Unknown]
  - No adverse event [Unknown]
